FAERS Safety Report 18078709 (Version 3)
Quarter: 2020Q3

REPORT INFORMATION
  Report Type: Report from Study
  Country: None (occurrence: CA)
  Receive Date: 20200727
  Receipt Date: 20200803
  Transmission Date: 20201103
  Serious: Yes (Other)
  Sender: FDA-Public Use
  Company Number: CA-ABBVIE-20K-028-3497937-00

PATIENT
  Age: 70 Year
  Sex: Female

DRUGS (1)
  1. HUMIRA [Suspect]
     Active Substance: ADALIMUMAB
     Indication: RHEUMATOID ARTHRITIS
     Route: 058
     Dates: start: 20190913

REACTIONS (4)
  - Procedural pain [Not Recovered/Not Resolved]
  - Post procedural contusion [Recovering/Resolving]
  - Asthenia [Not Recovered/Not Resolved]
  - Radiculotomy [Recovering/Resolving]

NARRATIVE: CASE EVENT DATE: 2020
